FAERS Safety Report 4620162-0 (Version None)
Quarter: 2005Q1

REPORT INFORMATION
  Report Type: 
  Country: None (occurrence: None)
  Receive Date: 20050324
  Receipt Date: 20050309
  Transmission Date: 20050727
  Serious: Yes (Other)
  Sender: FDA-Public Use
  Company Number: S05-NLD-01097-01

PATIENT
  Age: 64 Year
  Sex: Female

DRUGS (4)
  1. CITALOPRAM HYDROBROMIDE [Suspect]
     Dosage: 20  MG QD PO
     Route: 048
     Dates: start: 20041011
  2. CITALOPRAM HYDROBROMIDE [Suspect]
  3. DYAZIDE [Concomitant]
  4. FOSAMAX [Concomitant]

REACTIONS (1)
  - HAEMOGLOBIN DECREASED [None]
